FAERS Safety Report 8851704 (Version 2)
Quarter: 2012Q4

REPORT INFORMATION
  Report Type: 
  Country: US (occurrence: US)
  Receive Date: 20121022
  Receipt Date: 20121115
  Transmission Date: 20130627
  Serious: No
  Sender: FDA-Public Use
  Company Number: US-PFIZER INC-2012261394

PATIENT
  Age: 53 Year
  Sex: Female
  Weight: 65 kg

DRUGS (3)
  1. NEURONTIN [Suspect]
     Indication: CERVICAL VERTEBRA INJURY
     Dosage: 600 mg, 3x/day
     Route: 048
     Dates: start: 200905, end: 2011
  2. NEURONTIN [Suspect]
     Indication: THORACIC VERTEBRA INJURY
  3. NEURONTIN [Suspect]
     Indication: HEAD INJURY

REACTIONS (3)
  - Abnormal dreams [Not Recovered/Not Resolved]
  - Nightmare [Not Recovered/Not Resolved]
  - Fear [Not Recovered/Not Resolved]
